FAERS Safety Report 7907114-X (Version None)
Quarter: 2011Q4

REPORT INFORMATION
  Report Type: 
  Country: None (occurrence: None)
  Receive Date: 20111110
  Receipt Date: 20110902
  Transmission Date: 20120403
  Serious: No
  Sender: FDA-Public Use
  Company Number: US-ASTRAZENECA-2011SE46755

PATIENT
  Age: 813 Month
  Sex: Male

DRUGS (3)
  1. AMLODIPINE [Concomitant]
  2. DIURETIC [Concomitant]
  3. LISINOPRIL [Suspect]
     Route: 048

REACTIONS (2)
  - BLOOD PRESSURE INCREASED [None]
  - DRUG INEFFECTIVE [None]
